FAERS Safety Report 5118112-6 (Version None)
Quarter: 2006Q3

REPORT INFORMATION
  Report Type: 
  Country: None (occurrence: None)
  Receive Date: 20060925
  Receipt Date: 20060915
  Transmission Date: 20061208
  Serious: Yes (Hospitalization)
  Sender: FDA-Public Use
  Company Number: 2006-147814-NL

PATIENT
  Age: 41 Year
  Sex: Female

DRUGS (3)
  1. GONADOTROPINS [Suspect]
     Indication: IN VITRO FERTILISATION
     Dosage: 375 IU QD
     Route: 015
  2. GONADOTROPINS [Suspect]
     Indication: IN VITRO FERTILISATION
     Dosage: 375 IU QD
  3. CHORIONIC GONADOTROPIN [Suspect]
     Dosage: 5000 IU, USED ON CYCLE DAY 13

REACTIONS (5)
  - CAESAREAN SECTION [None]
  - OVARIAN CYST [None]
  - OVARIAN TORSION [None]
  - PREMATURE RUPTURE OF MEMBRANES [None]
  - TWIN PREGNANCY [None]
